FAERS Safety Report 20039609 (Version 2)
Quarter: 2022Q1

REPORT INFORMATION
  Report Type: Report from Study
  Country: US (occurrence: US)
  Receive Date: 20211106
  Receipt Date: 20220120
  Transmission Date: 20220423
  Serious: Yes (Other)
  Sender: FDA-Public Use
  Company Number: US-ABBVIE-21K-163-4145007-00

PATIENT
  Age: 57 Year
  Sex: Female
  Weight: 81.720 kg

DRUGS (1)
  1. HUMIRA [Suspect]
     Active Substance: ADALIMUMAB
     Indication: Ankylosing spondylitis
     Dosage: CITRATE FREE
     Route: 058

REACTIONS (1)
  - Ligament disorder [Unknown]

NARRATIVE: CASE EVENT DATE: 20210922
